FAERS Safety Report 23330234 (Version 1)
Quarter: 2023Q4

REPORT INFORMATION
  Report Type: Report from Study
  Country: NL (occurrence: NL)
  Receive Date: 20231222
  Receipt Date: 20231222
  Transmission Date: 20240110
  Serious: Yes (Death)
  Sender: FDA-Public Use
  Company Number: NL-ABBVIE-5553357

PATIENT
  Age: 70 Year
  Sex: Female

DRUGS (13)
  1. CARBIDOPA\LEVODOPA [Suspect]
     Active Substance: CARBIDOPA\LEVODOPA
     Indication: Parkinson^s disease
     Dosage: MD: 10ML CD:3.7 ML ED: 2.0 ML, ?REMAINS AT 16 HOURS
     Route: 050
     Dates: start: 20230824, end: 20230906
  2. CARBIDOPA\LEVODOPA [Suspect]
     Active Substance: CARBIDOPA\LEVODOPA
     Dosage: MD: 13ML CD:3.9 ML ED: 2.0 ML, ?REMAINS AT 16 HOURS
     Route: 050
     Dates: start: 20230713, end: 20230717
  3. CARBIDOPA\LEVODOPA [Suspect]
     Active Substance: CARBIDOPA\LEVODOPA
     Dosage: MD: 13ML CD:3.7 ML ED: 2.0 ML, ?REMAINS AT 16 HOURS
     Route: 050
     Dates: start: 20230807, end: 20230824
  4. CARBIDOPA\LEVODOPA [Suspect]
     Active Substance: CARBIDOPA\LEVODOPA
     Route: 050
     Dates: start: 20230710, end: 20231217
  5. CARBIDOPA\LEVODOPA [Suspect]
     Active Substance: CARBIDOPA\LEVODOPA
     Dosage: MD: 9ML CD:3.7 ML ED: 2.0 ML, ?REMAINS AT 16 HOURS
     Route: 050
     Dates: start: 20230906, end: 20231107
  6. CARBIDOPA\LEVODOPA [Suspect]
     Active Substance: CARBIDOPA\LEVODOPA
     Dosage: MD: 13ML CD:3.8 ML ED: 2.0 ML, ?REMAINS AT 16 HOURS
     Route: 050
     Dates: start: 20230717, end: 20230807
  7. Clonazepam TZF [Concomitant]
     Indication: Abnormal dreams
     Dosage: FORM STRENGTH: 0.5 MILLIGRAM, ?FREQUENCY TEXT: BEFORE SLEEPING
     Dates: start: 20230615
  8. Clonazepam TZF [Concomitant]
     Indication: Abnormal dreams
     Dosage: FORM STRENGTH: 2  MILLIGRAM, ?FREQUENCY TEXT: BEFORE SLEEPING
     Route: 065
     Dates: start: 20200615
  9. BENSERAZIDE HYDROCHLORIDE\LEVODOPA [Concomitant]
     Active Substance: BENSERAZIDE HYDROCHLORIDE\LEVODOPA
     Indication: Parkinson^s disease
     Dosage: FREQUENCY TEXT: BEFORE SLEEPING
     Route: 065
     Dates: start: 20180625
  10. DOMPERIDONE [Concomitant]
     Active Substance: DOMPERIDONE
     Indication: Product used for unknown indication
     Route: 065
     Dates: start: 20230615
  11. MOVICOLON [Concomitant]
     Active Substance: POLYETHYLENE GLYCOL 3350\POTASSIUM CHLORIDE\SODIUM BICARBONATE\SODIUM CHLORIDE
     Indication: Bowel movement irregularity
     Route: 065
  12. ACETAMINOPHEN [Concomitant]
     Active Substance: ACETAMINOPHEN
     Indication: Pain
     Dosage: TIME INTERVAL: 0.33333333 DAYS: FORM STRENGTH: 500 MILLIGRAM
     Route: 065
     Dates: start: 20210614
  13. POLYETHYLENE GLYCOLS [Concomitant]
     Active Substance: POLYETHYLENE GLYCOLS
     Indication: Bowel movement irregularity
     Route: 065
     Dates: start: 20150615

REACTIONS (1)
  - Death [Fatal]

NARRATIVE: CASE EVENT DATE: 20231217
